FAERS Safety Report 10386477 (Version 4)
Quarter: 2014Q4

REPORT INFORMATION
  Report Type: Spontaneous
  Country: US (occurrence: US)
  Receive Date: 20140815
  Receipt Date: 20141007
  Transmission Date: 20150528
  Serious: Yes (Hospitalization)
  Sender: FDA-Public Use
  Company Number: US-UNITED THERAPEUTICS-UNT-2014-002987

PATIENT
  Age: 56 Year
  Sex: Male
  Weight: 142.4 kg

DRUGS (1)
  1. REMODULIN [Suspect]
     Active Substance: TREPROSTINIL
     Indication: PULMONARY ARTERIAL HYPERTENSION
     Dosage: 0.048 ?G/KG, CONTINUING
     Route: 058
     Dates: start: 20121205

REACTIONS (6)
  - Hypoxia [Unknown]
  - Infusion site infection [Unknown]
  - Dyspnoea [Unknown]
  - Hypotension [Unknown]
  - Acute respiratory failure [Unknown]
  - Pulmonary arterial hypertension [Unknown]

NARRATIVE: CASE EVENT DATE: 20140526
